FAERS Safety Report 14982443 (Version 10)
Quarter: 2024Q2

REPORT INFORMATION
  Report Type: Spontaneous
  Country: US (occurrence: US)
  Receive Date: 20180607
  Receipt Date: 20240408
  Transmission Date: 20240715
  Serious: Yes (Hospitalization)
  Sender: FDA-Public Use
  Company Number: US-PFIZER INC-2018231444

PATIENT
  Age: 26 Year
  Sex: Female
  Weight: 81.65 kg

DRUGS (8)
  1. PREMARIN [Suspect]
     Active Substance: ESTROGENS, CONJUGATED
     Indication: Hot flush
     Dosage: 1.25 MG, 1X/DAY
     Route: 048
  2. PREMARIN [Suspect]
     Active Substance: ESTROGENS, CONJUGATED
     Indication: Vitiligo
     Dosage: 200 MG, 1X/DAY
     Dates: start: 1973
  3. PREMARIN [Suspect]
     Active Substance: ESTROGENS, CONJUGATED
     Indication: Hysterectomy
     Dosage: 1.25 MG, DAILY [TAKE 1 TABLET BY MOUTH DAILY]
     Route: 048
  4. PREMARIN [Suspect]
     Active Substance: ESTROGENS, CONJUGATED
     Indication: Menopause
  5. OXYCODONE [Concomitant]
     Active Substance: OXYCODONE\OXYCODONE HYDROCHLORIDE
     Indication: Spinal operation
     Dosage: UNK
  6. LYRICA [Concomitant]
     Active Substance: PREGABALIN
     Dosage: UNK
  7. ZOLOFT [Concomitant]
     Active Substance: SERTRALINE HYDROCHLORIDE
     Dosage: UNK
  8. WELLBUTRIN [Concomitant]
     Active Substance: BUPROPION HYDROCHLORIDE
     Dosage: UNK

REACTIONS (5)
  - Hot flush [Recovered/Resolved]
  - Condition aggravated [Recovered/Resolved]
  - Hyperhidrosis [Recovered/Resolved]
  - Limb discomfort [Unknown]
  - Overdose [Unknown]

NARRATIVE: CASE EVENT DATE: 19730101
